FAERS Safety Report 25186013 (Version 1)
Quarter: 2025Q2

REPORT INFORMATION
  Report Type: Spontaneous
  Country: VN (occurrence: VN)
  Receive Date: 20250410
  Receipt Date: 20250410
  Transmission Date: 20250716
  Serious: Yes (Life-Threatening, Other)
  Sender: MERCK SHARP AND DOHME
  Company Number: VN-009507513-2273783

PATIENT
  Age: 61 Year
  Sex: Male

DRUGS (2)
  1. PEMBROLIZUMAB [Suspect]
     Active Substance: PEMBROLIZUMAB
     Indication: Oesophageal carcinoma
     Dates: start: 2024
  2. CAPECITABINE [Suspect]
     Active Substance: CAPECITABINE
     Indication: Oesophageal carcinoma

REACTIONS (3)
  - Gastric ulcer perforation [Unknown]
  - Acute myocardial infarction [Unknown]
  - Coronary artery stenosis [Unknown]

NARRATIVE: CASE EVENT DATE: 20240701
